FAERS Safety Report 16525578 (Version 1)
Quarter: 2019Q3

REPORT INFORMATION
  Report Type: Spontaneous
  Country: US (occurrence: US)
  Receive Date: 20190703
  Receipt Date: 20190703
  Transmission Date: 20191004
  Serious: No
  Sender: FDA-Public Use
  Company Number: US-SA-2019SA171695

PATIENT
  Sex: Female

DRUGS (1)
  1. LANTUS [Suspect]
     Active Substance: INSULIN GLARGINE
     Indication: TYPE 2 DIABETES MELLITUS
     Dosage: 30-36 UNITS, QD
     Route: 065

REACTIONS (4)
  - Heart rate irregular [Unknown]
  - Asthma [Unknown]
  - Blood glucose decreased [Unknown]
  - Tremor [Unknown]
